FAERS Safety Report 8500004-3 (Version None)
Quarter: 2012Q2

REPORT INFORMATION
  Report Type: 
  Country: None (occurrence: None)
  Receive Date: 20120629
  Receipt Date: 20120614
  Transmission Date: 20120825
  Serious: Yes (Other)
  Sender: FDA-Public Use
  Company Number: 217985

PATIENT
  Age: 64 Year
  Sex: Female

DRUGS (5)
  1. SYNTHROID [Concomitant]
  2. PICATO [Suspect]
     Indication: SKIN CHAPPED
     Dates: start: 20120607, end: 20120608
  3. PICATO [Suspect]
     Indication: ACTINIC KERATOSIS
     Dates: start: 20120607, end: 20120608
  4. PICATO [Suspect]
     Indication: EYELID EXFOLIATION
     Dates: start: 20120607, end: 20120608
  5. CRESTOR [Concomitant]

REACTIONS (4)
  - PAIN [None]
  - MADAROSIS [None]
  - SCAB [None]
  - SKIN ULCER [None]
